FAERS Safety Report 5003175-9 (Version None)
Quarter: 2006Q2

REPORT INFORMATION
  Report Type: 
  Country: None (occurrence: None)
  Receive Date: 20060516
  Receipt Date: 20060404
  Transmission Date: 20061013
  Serious: Yes (Death, Hospitalization)
  Sender: FDA-Public Use
  Company Number: TR-NOVOPROD-252196

PATIENT
  Age: 73 Year
  Sex: Male

DRUGS (25)
  1. NOVOSEVEN [Suspect]
     Indication: HAEMORRHAGE
     Dosage: 90-100 UG/KG EVERY 6 HOURS
     Dates: start: 20060303, end: 20060306
  2. NOVOSEVEN [Suspect]
     Dosage: 90-100 UG/KG EVERY 12 HOURS
     Dates: start: 20060307, end: 20060314
  3. CORASPIN [Concomitant]
  4. FLUVOXAMINE MALEATE [Concomitant]
  5. LIORESAL [Concomitant]
  6. NORODOL [Concomitant]
  7. FLUDEX [Concomitant]
  8. TEFOR [Concomitant]
  9. GINKGO BILOBA [Concomitant]
  10. LEVOTIRON [Concomitant]
  11. KARVEZIDE [Concomitant]
  12. FLOMAX [Concomitant]
  13. RHINOCORT [Concomitant]
  14. DORSILON [Concomitant]
  15. MOBIC [Concomitant]
  16. PREDNOL                            /00049601/ [Concomitant]
     Dosage: 60 MG, UNK
     Route: 042
     Dates: start: 20060303
  17. IMMUNE GLOBULIN (HUMAN) [Concomitant]
     Route: 042
     Dates: start: 20060310, end: 20060315
  18. CIPROFLOXACINA [Concomitant]
  19. CEPHALOSPORIN C [Concomitant]
  20. FRESH FROZEN PLASMA [Concomitant]
     Dosage: 55 U, UNK
  21. RED BLOOD CELLS [Concomitant]
     Dosage: 23 U, UNK
  22. CRYOPRECIPITATES [Concomitant]
     Dosage: 41 U, UNK
  23. ADRENALINE                         /00003901/ [Concomitant]
     Dosage: 3 AMPOULES
     Dates: start: 20060322
  24. ATROPINE [Concomitant]
     Dosage: 3 AMPOULES
     Dates: start: 20060322
  25. SODIUM BICARBONATE [Concomitant]
     Dosage: 5 AMPOULES
     Dates: start: 20060322

REACTIONS (2)
  - DRUG INEFFECTIVE [None]
  - HAEMORRHAGE [None]
